FAERS Safety Report 26046205 (Version 1)
Quarter: 2025Q4

REPORT INFORMATION
  Report Type: Spontaneous
  Country: US (occurrence: US)
  Receive Date: 20251114
  Receipt Date: 20251114
  Transmission Date: 20260119
  Serious: No
  Sender: GALDERMA
  Company Number: US-GALDERMA-US2025022116

PATIENT
  Sex: Male

DRUGS (1)
  1. NEMLUVIO [Suspect]
     Active Substance: NEMOLIZUMAB-ILTO
     Indication: Eczema
     Route: 058

REACTIONS (2)
  - Off label use [Recovered/Resolved]
  - Intentional overdose [Recovered/Resolved]
